FAERS Safety Report 24326206 (Version 1)
Quarter: 2024Q3

REPORT INFORMATION
  Report Type: Spontaneous
  Country: DE (occurrence: DE)
  Receive Date: 20240917
  Receipt Date: 20240917
  Transmission Date: 20241017
  Serious: Yes (Hospitalization, Other)
  Sender: AMGEN
  Company Number: DE-AMGEN-DEUSP2024179597

PATIENT
  Age: 88 Year
  Sex: Male

DRUGS (1)
  1. PROLIA [Suspect]
     Active Substance: DENOSUMAB
     Indication: Osteoporosis
     Dosage: UNK, Q6MO(2X ANNUALLY FOR 3 YEARS)
     Route: 065

REACTIONS (2)
  - Weight decreased [Unknown]
  - Small intestine polyp [Unknown]
